FAERS Safety Report 15761539 (Version 1)
Quarter: 2018Q4

REPORT INFORMATION
  Report Type: Spontaneous
  Country: US (occurrence: US)
  Receive Date: 20181226
  Receipt Date: 20181226
  Transmission Date: 20190205
  Serious: No
  Sender: FDA-Public Use
  Company Number: US-GLAXOSMITHKLINE-US2018230816

PATIENT
  Sex: Female

DRUGS (1)
  1. FLONASE ALLERGY RELIEF [Suspect]
     Active Substance: FLUTICASONE PROPIONATE
     Indication: PRODUCT USED FOR UNKNOWN INDICATION
     Dosage: UNK

REACTIONS (7)
  - Adverse drug reaction [Unknown]
  - Dizziness [Unknown]
  - Nasopharyngitis [Unknown]
  - Feeling jittery [Unknown]
  - Nausea [Unknown]
  - Anxiety [Unknown]
  - Nervousness [Unknown]
